FAERS Safety Report 9334770 (Version 2)
Quarter: 2013Q4

REPORT INFORMATION
  Report Type: Spontaneous
  Country: US (occurrence: US)
  Receive Date: 20130606
  Receipt Date: 20131023
  Transmission Date: 20140711
  Serious: Yes (Other)
  Sender: FDA-Public Use
  Company Number: US-PFIZER INC-2013168155

PATIENT
  Sex: Female

DRUGS (1)
  1. PREMARIN [Suspect]
     Dosage: UNK
     Route: 067

REACTIONS (7)
  - Urinary tract infection [Unknown]
  - Pruritus [Unknown]
  - Vaginal infection [Unknown]
  - Arthritis [Unknown]
  - Fungal infection [Unknown]
  - Dyspareunia [Unknown]
  - Depression [Unknown]
